FAERS Safety Report 9059481 (Version 1)
Quarter: 2013Q1

REPORT INFORMATION
  Report Type: Spontaneous
  Country: US (occurrence: US)
  Receive Date: 20130211
  Receipt Date: 20130211
  Transmission Date: 20140127
  Serious: Yes (Hospitalization)
  Sender: FDA-Public Use
  Company Number: US-SHIRE-ALL1-2013-00678

PATIENT
  Sex: Male
  Weight: 136.5 kg

DRUGS (17)
  1. LIALDA [Suspect]
     Indication: COLITIS ULCERATIVE
     Dosage: 4.8 G( FOUR 1.2 G TABLETS), 1X/DAY:QD
     Route: 048
  2. ASPIRIN [Concomitant]
     Indication: PRODUCT USED FOR UNKNOWN INDICATION
     Dosage: UNK, UNKNOWN
     Route: 065
     Dates: end: 201204
  3. TOPROL [Concomitant]
     Indication: ATRIAL FIBRILLATION
     Dosage: 100 MG, 1X/DAY:QD
     Route: 048
     Dates: start: 200411
  4. HCT [Concomitant]
     Indication: HYPERTENSION
     Dosage: 12.5 MG, 1X/DAY:QD
     Route: 048
     Dates: start: 2006
  5. ZETIA [Concomitant]
     Indication: BLOOD CHOLESTEROL INCREASED
     Dosage: 10 MG, 1X/DAY:QD
     Route: 048
     Dates: start: 2004
  6. FOLIC ACID [Concomitant]
     Indication: SUPPLEMENTATION THERAPY
     Dosage: 1 MG, 1X/DAY:QD
     Route: 048
     Dates: start: 2001
  7. OMEPRAZOLE [Concomitant]
     Indication: GASTROOESOPHAGEAL REFLUX DISEASE
     Dosage: 40 MG, 2X/DAY:BID
     Route: 048
     Dates: start: 201204
  8. OMEPRAZOLE [Concomitant]
     Dosage: 20 MG, 1X/DAY:QD
     Route: 048
     Dates: start: 2009, end: 201204
  9. ADDERALL [Concomitant]
     Indication: SOMNOLENCE
     Dosage: 30 MG, AS REQ^D
     Route: 048
     Dates: start: 2006
  10. IMURAN                             /00001501/ [Concomitant]
     Indication: COLITIS ULCERATIVE
     Dosage: 250 MG, 1X/DAY:QD
     Route: 048
     Dates: start: 201301
  11. IMURAN                             /00001501/ [Concomitant]
     Dosage: 300 MG(SIX 50 MG TABLETS), 1X/DAY:QD
     Route: 048
     Dates: start: 2001, end: 201301
  12. CIALIS [Concomitant]
     Indication: ERECTILE DYSFUNCTION
     Dosage: 20 MG, AS REQ^D
     Route: 048
     Dates: start: 2006
  13. ZYRTEC [Concomitant]
     Indication: SEASONAL ALLERGY
     Dosage: 10 MG, UNKNOWN
     Route: 048
  14. NASAL SPRAY II [Concomitant]
     Indication: HYPERSENSITIVITY
     Dosage: UNK, AS REQ^D
     Route: 045
     Dates: start: 1990
  15. PATANOL [Concomitant]
     Indication: HYPERSENSITIVITY
     Dosage: UNK, AS REQ^D(TWO TIMES A DAY)
     Route: 031
     Dates: start: 1990
  16. VITAMIN D /00107901/ [Concomitant]
     Indication: VITAMIN D DECREASED
     Dosage: 2000 IU, 1X/DAY:QD
     Route: 065
     Dates: start: 201111
  17. NASCOBAL [Concomitant]
     Indication: VITAMIN B12 DECREASED
     Dosage: 500 ?G, 1X/WEEK
     Route: 045
     Dates: start: 201111

REACTIONS (7)
  - Duodenal ulcer [Unknown]
  - Abdominal pain [Not Recovered/Not Resolved]
  - Helicobacter test positive [Unknown]
  - Benign prostatic hyperplasia [Unknown]
  - Anxiety [Not Recovered/Not Resolved]
  - Constipation [Not Recovered/Not Resolved]
  - Chromaturia [Unknown]
